FAERS Safety Report 8145317-2 (Version None)
Quarter: 2012Q1

REPORT INFORMATION
  Report Type: 
  Country: None (occurrence: None)
  Receive Date: 20120217
  Receipt Date: 20120212
  Transmission Date: 20120608
  Serious: Yes (Other)
  Sender: FDA-Public Use
  Company Number: PHEH2011US08337

PATIENT
  Sex: Male

DRUGS (9)
  1. ENOXAPARIN SODIUM [Concomitant]
     Dosage: 135 MG, PER DAY
  2. SIMETHICONE [Concomitant]
     Indication: FLATULENCE
     Dosage: 18 MG, EVERY 8 HRS
  3. AFINITOR [Suspect]
     Indication: RENAL CELL CARCINOMA
     Dosage: 10 MG PER DAY
     Dates: start: 20110909
  4. GANATON [Concomitant]
     Dosage: 50 MG, PER DAY
  5. FISH OIL [Concomitant]
     Dosage: UNK UKN, UNK
  6. SENOKOT [Concomitant]
     Indication: CONSTIPATION
  7. LASIX [Concomitant]
     Dosage: 20 MG PER DAY
  8. OXYCONTIN [Concomitant]
     Indication: PAIN
     Dosage: 20 MG, BID
  9. PROTONIX [Concomitant]
     Dosage: 14 MG, PER DAY

REACTIONS (7)
  - BRAIN NEOPLASM MALIGNANT [None]
  - CONVULSION [None]
  - LUNG NEOPLASM MALIGNANT [None]
  - NEOPLASM PROGRESSION [None]
  - NEOPLASM MALIGNANT [None]
  - BRAIN MASS [None]
  - DRUG INEFFECTIVE [None]
